FAERS Safety Report 8530392-3 (Version None)
Quarter: 2012Q3

REPORT INFORMATION
  Report Type: 
  Country: None (occurrence: None)
  Receive Date: 20120723
  Receipt Date: 20120717
  Transmission Date: 20120928
  Serious: Yes (Other)
  Sender: FDA-Public Use
  Company Number: US-PFIZER INC-2012149141

PATIENT

DRUGS (5)
  1. LISINOPRIL [Concomitant]
     Dosage: UNK
  2. NEURONTIN [Suspect]
     Dosage: 300 MG, 3X/DAY
     Route: 048
  3. CYMBALTA [Concomitant]
     Dosage: UNK
  4. TRAMADOL [Concomitant]
     Dosage: UNK
  5. FLEXERIL [Concomitant]
     Dosage: UNK

REACTIONS (5)
  - SPINAL COLUMN STENOSIS [None]
  - SEASONAL AFFECTIVE DISORDER [None]
  - IMPAIRED WORK ABILITY [None]
  - BACK DISORDER [None]
  - BIPOLAR DISORDER [None]
